FAERS Safety Report 8337540 (Version 3)
Quarter: 2014Q1

REPORT INFORMATION
  Report Type: Spontaneous
  Country: US (occurrence: US)
  Receive Date: 20120116
  Receipt Date: 20140127
  Transmission Date: 20141002
  Serious: Yes (Hospitalization)
  Sender: FDA-Public Use
  Company Number: US-BAYER-2012-002941

PATIENT
  Age: 20 Year
  Sex: Female
  Weight: 45.35 kg

DRUGS (11)
  1. YASMIN [Suspect]
     Dosage: UNK
     Dates: start: 2002
  2. MOTRIN [Concomitant]
     Dosage: UNK
     Dates: start: 1991
  3. IBUPROFEN [Concomitant]
     Dosage: UNK
     Dates: start: 1991
  4. NAPROXEN [Concomitant]
     Dosage: UNK
     Dates: start: 1991
  5. ALBUTEROL [Concomitant]
     Indication: ASTHMA
     Dosage: UNK
     Dates: start: 1998
  6. THEOPHYLLINE [Concomitant]
     Indication: ASTHMA
     Dosage: UNK
     Dates: start: 1998
  7. CIPROFLOXACIN [Concomitant]
     Dosage: UNK
     Dates: start: 20040624
  8. CIPROFLOXACIN [Concomitant]
     Dosage: UNK
     Dates: start: 20040809
  9. ZITHROMAX [Concomitant]
     Dosage: UNK
     Dates: start: 20040713
  10. ACETAMINOPHEN W/PROPOXYPHENE [Concomitant]
     Dosage: UNK
     Dates: start: 20040713
  11. TYLENOL #3 [Concomitant]

REACTIONS (6)
  - Gallbladder injury [None]
  - Cholecystitis acute [None]
  - Pain [None]
  - Anxiety [None]
  - Emotional distress [None]
  - Asthenia [None]
